FAERS Safety Report 24081524 (Version 1)
Quarter: 2024Q3

REPORT INFORMATION
  Report Type: Spontaneous
  Country: DK (occurrence: DK)
  Receive Date: 20240712
  Receipt Date: 20240712
  Transmission Date: 20241016
  Serious: Yes (Hospitalization)
  Sender: NOVO NORDISK
  Company Number: None

PATIENT
  Age: 72 Year
  Sex: Female
  Weight: 115 kg

DRUGS (6)
  1. VESICARE [Concomitant]
     Active Substance: SOLIFENACIN SUCCINATE
     Indication: Dysuria
     Dosage: UNK
     Dates: start: 20240201
  2. RISPERIDONE [Interacting]
     Active Substance: RISPERIDONE
     Indication: Bipolar disorder
     Dosage: 50 MG
     Dates: start: 20130419
  3. WEGOVY [Interacting]
     Active Substance: SEMAGLUTIDE
     Dosage: 1 MG, QW
     Route: 058
     Dates: start: 20240402, end: 20240606
  4. WEGOVY [Interacting]
     Active Substance: SEMAGLUTIDE
     Indication: Overweight
     Dosage: 0.25 MG, QW
     Route: 058
     Dates: start: 202402, end: 20240606
  5. WEGOVY [Interacting]
     Active Substance: SEMAGLUTIDE
     Dosage: 0.5 MG, QW
     Route: 058
     Dates: start: 20240307
  6. PRADAXA [Concomitant]
     Active Substance: DABIGATRAN ETEXILATE MESYLATE
     Indication: Thrombosis prophylaxis
     Dosage: 172.95 MG
     Route: 048
     Dates: start: 2016

REACTIONS (5)
  - Antipsychotic drug level increased [Recovered/Resolved]
  - Apathy [Unknown]
  - Fatigue [Unknown]
  - Asthenia [Unknown]
  - Drug interaction [Unknown]

NARRATIVE: CASE EVENT DATE: 20240501
